FAERS Safety Report 5503110-0 (Version None)
Quarter: 2007Q4

REPORT INFORMATION
  Report Type: 
  Country: None (occurrence: None)
  Receive Date: 20071031
  Receipt Date: 20071026
  Transmission Date: 20080405
  Serious: Yes (Other)
  Sender: FDA-Public Use
  Company Number: AT-SANOFI-SYNTHELABO-F01200701382

PATIENT

DRUGS (3)
  1. FOLINIC ACID [Suspect]
     Dosage: DAY 1 AND DAY 2
     Route: 042
  2. FLUOROURACIL [Suspect]
     Dosage: 400 MG/M2 IV BOLUS THEN 600 MG/M2 CONTINUOUS INFUSION OVER 22 H
     Route: 042
  3. OXALIPLATIN [Suspect]
     Indication: COLORECTAL CANCER
     Route: 042

REACTIONS (1)
  - HEPATOCELLULAR DAMAGE [None]
